FAERS Safety Report 21796040 (Version 1)
Quarter: 2022Q4

REPORT INFORMATION
  Report Type: Spontaneous
  Country: US (occurrence: None)
  Receive Date: 20221228
  Receipt Date: 20221228
  Transmission Date: 20230113
  Serious: No
  Sender: FDA-Public Use
  Company Number: None

PATIENT
  Sex: Male

DRUGS (1)
  1. HUMIRA [Suspect]
     Active Substance: ADALIMUMAB
     Indication: Hidradenitis
     Dosage: FREQUENCY : AS DIRECTED;?
     Route: 058
     Dates: start: 20221215

REACTIONS (8)
  - Fatigue [None]
  - Decreased appetite [None]
  - Faeces discoloured [None]
  - Back pain [None]
  - Renal pain [None]
  - Hyperaesthesia [None]
  - Chest pain [None]
  - Dyspnoea [None]
